FAERS Safety Report 14763569 (Version 3)
Quarter: 2019Q2

REPORT INFORMATION
  Report Type: Spontaneous
  Country: NZ (occurrence: NZ)
  Receive Date: 20180416
  Receipt Date: 20190626
  Transmission Date: 20190711
  Serious: Yes (Death)
  Sender: FDA-Public Use
  Company Number: NZ-MYLANLABS-2018M1025015

PATIENT
  Sex: Male

DRUGS (47)
  1. CLOZARIL [Suspect]
     Active Substance: CLOZAPINE
     Indication: SCHIZOPHRENIA
     Dosage: UNK
     Route: 048
     Dates: start: 19920731
  2. CLOZARIL [Suspect]
     Active Substance: CLOZAPINE
     Dosage: 300 MILLIGRAM, PM
     Route: 048
     Dates: start: 20170309
  3. RISPERIDONE TEVA [Concomitant]
     Active Substance: RISPERIDONE
     Dosage: 1 DOSAGE FORM, PM
     Dates: start: 20180212
  4. MOLAXOLE [Concomitant]
     Active Substance: POLYETHYLENE GLYCOL 3350\POTASSIUM CHLORIDE\SODIUM BICARBONATE\SODIUM CHLORIDE
     Dosage: TWO SACHETS TWICE DAILY, DISSOLVE EACH SACHET IN 125ML OF WATER
     Dates: start: 20171218
  5. CLOZARIL [Suspect]
     Active Substance: CLOZAPINE
     Dosage: 1 DOSAGE FORM, AM
     Route: 048
     Dates: start: 20180220
  6. CLOZARIL [Suspect]
     Active Substance: CLOZAPINE
     Dosage: 3 DOSAGE FORM, PM
     Route: 048
     Dates: start: 20180220
  7. LACTULOSE. [Concomitant]
     Active Substance: LACTULOSE
     Dosage: 20 MILLILITER, BID (TAKE WITH A LARGE GLASS OF WATER)
     Dates: start: 20171113
  8. LACTULOSE. [Concomitant]
     Active Substance: LACTULOSE
     Dosage: 20 MILLILITER, BID (TAKE WITH A LARGE GLASS OF WATER)
     Dates: start: 20180219
  9. DICLOFENAC SODIUM. [Concomitant]
     Active Substance: DICLOFENAC SODIUM
     Dosage: 1 DOSAGE FORM, BID ( (WITH FOOD AND A LARGE GLASS OF WATER. SWALLOW WHOLE)
     Dates: start: 20180220
  10. RISPERIDONE TEVA [Concomitant]
     Active Substance: RISPERIDONE
     Dosage: 1 DOSAGE FORM, PM
     Dates: start: 20180221
  11. CLOZARIL [Suspect]
     Active Substance: CLOZAPINE
     Dosage: 25 MILLIGRAM, AM
     Route: 048
     Dates: start: 20170309
  12. CLOZARIL [Suspect]
     Active Substance: CLOZAPINE
     Dosage: 1 DOSAGE FORM, AM
     Route: 048
     Dates: start: 20171229
  13. CLOZARIL [Suspect]
     Active Substance: CLOZAPINE
     Dosage: 3 DOSAGE FORM, PM
     Route: 048
     Dates: start: 20171229
  14. LACTULOSE. [Concomitant]
     Active Substance: LACTULOSE
     Dosage: 20 MILLILITER, BID (TAKE WITH A LARGE GLASS OF WATER)
     Dates: start: 20171205
  15. ATORVASTATIN [Concomitant]
     Active Substance: ATORVASTATIN
     Dosage: 1 DOSAGE FORM, PM
     Dates: start: 20180221
  16. DOCUSATE SODIUM W/SENNOSIDE A+B [Concomitant]
     Active Substance: DOCUSATE SODIUM\SENNOSIDES A AND B
     Dosage: 2 DOSAGE FORM, BID
     Dates: start: 20171102
  17. DOCUSATE SODIUM W/SENNOSIDE A+B [Concomitant]
     Active Substance: DOCUSATE SODIUM\SENNOSIDES A AND B
     Dosage: 2 DOSAGE FORM, BID
     Dates: start: 20171128
  18. DOCUSATE SODIUM W/SENNOSIDE A+B [Concomitant]
     Active Substance: DOCUSATE SODIUM\SENNOSIDES A AND B
     Dosage: 2 DOSAGE FORM, BID
     Dates: start: 20171218
  19. RISPERIDONE TEVA [Concomitant]
     Active Substance: RISPERIDONE
     Dosage: 1 DOSAGE FORM, PM
     Dates: start: 20171218
  20. RISPERIDONE TEVA [Concomitant]
     Active Substance: RISPERIDONE
     Dosage: 1 DOSAGE FORM, TID (MAX 3MG TOTAL DAILY DOSE)
     Dates: start: 20171222
  21. MOLAXOLE [Concomitant]
     Active Substance: POLYETHYLENE GLYCOL 3350\POTASSIUM CHLORIDE\SODIUM BICARBONATE\SODIUM CHLORIDE
     Dosage: TWO SACHETS TWICE DAILY, DISSOLVE EACH SACHET IN 125ML OF WATER
     Dates: start: 20171205
  22. CLOZARIL [Suspect]
     Active Substance: CLOZAPINE
     Dosage: 1 DOSAGE FORM, AM
     Route: 048
     Dates: start: 20180212
  23. ATORVASTATIN [Concomitant]
     Active Substance: ATORVASTATIN
     Dosage: 1 DOSAGE FORM, PM
     Dates: start: 20171218
  24. ATORVASTATIN [Concomitant]
     Active Substance: ATORVASTATIN
     Dosage: 1 DOSAGE FORM, PM
     Dates: start: 20180212
  25. CITALOPRAM [Concomitant]
     Active Substance: CITALOPRAM HYDROBROMIDE
     Dosage: 1 DOSAGE FORM, QD
     Dates: start: 20171218
  26. CITALOPRAM [Concomitant]
     Active Substance: CITALOPRAM HYDROBROMIDE
     Dosage: 1 DOSAGE FORM, QD
     Dates: start: 20180212
  27. DOCUSATE SODIUM W/SENNOSIDE A+B [Concomitant]
     Active Substance: DOCUSATE SODIUM\SENNOSIDES A AND B
     Dosage: 2 DOSAGE FORM, BID
     Dates: start: 20180212
  28. MOLAXOLE [Concomitant]
     Active Substance: POLYETHYLENE GLYCOL 3350\POTASSIUM CHLORIDE\SODIUM BICARBONATE\SODIUM CHLORIDE
     Dosage: TWO SACHETS TWICE DAILY, DISSOLVE EACH SACHET IN 125ML OF WATER
     Dates: start: 20180212
  29. CLOZARIL [Suspect]
     Active Substance: CLOZAPINE
     Dosage: 3 DOSAGE FORM, PM
     Route: 048
     Dates: start: 20180212
  30. DICLOFENAC SODIUM. [Concomitant]
     Active Substance: DICLOFENAC SODIUM
     Dosage: 1 DOSAGE FORM, BID (WITH FOOD AND A LARGE GLASS OF WATER. SWALLOW WHOLE)
     Dates: start: 20180226
  31. ATORVASTATIN [Concomitant]
     Active Substance: ATORVASTATIN
     Dosage: 1 DOSAGE FORM, PM
     Dates: start: 20171128
  32. CITALOPRAM [Concomitant]
     Active Substance: CITALOPRAM HYDROBROMIDE
     Dosage: 1 DOSAGE FORM, QD
     Dates: start: 20180221
  33. DOCUSATE SODIUM W/SENNOSIDE A+B [Concomitant]
     Active Substance: DOCUSATE SODIUM\SENNOSIDES A AND B
     Dosage: 2 DOSAGE FORM, BID
     Dates: start: 20180221
  34. RISPERIDONE TEVA [Concomitant]
     Active Substance: RISPERIDONE
     Dosage: 1 DOSAGE FORM, PM
     Dates: start: 20171102
  35. RISPERIDONE TEVA [Concomitant]
     Active Substance: RISPERIDONE
     Dosage: 1 DOSAGE FORM, PM
     Dates: start: 20171128
  36. CLOZARIL [Suspect]
     Active Substance: CLOZAPINE
     Dosage: 1 DOSAGE FORM, AM
     Route: 048
     Dates: start: 20171108
  37. CLOZARIL [Suspect]
     Active Substance: CLOZAPINE
     Dosage: 1 DOSAGE FORM, AM
     Route: 048
     Dates: start: 20171205
  38. CLOZARIL [Suspect]
     Active Substance: CLOZAPINE
     Dosage: 3 DOSAGE FORM, PM
     Route: 048
     Dates: start: 20171205
  39. LACTULOSE. [Concomitant]
     Active Substance: LACTULOSE
     Dosage: 20 MILLILITER, BID (TAKE WITH A LARGE GLASS OF WATER)
     Dates: start: 20180305
  40. ATORVASTATIN [Concomitant]
     Active Substance: ATORVASTATIN
     Dosage: 1 DOSAGE FORM, PM
     Dates: start: 20171102
  41. CITALOPRAM [Concomitant]
     Active Substance: CITALOPRAM HYDROBROMIDE
     Dosage: 1 DOSAGE FORM, QD
     Dates: start: 20171102
  42. CITALOPRAM [Concomitant]
     Active Substance: CITALOPRAM HYDROBROMIDE
     Dosage: 1 DOSAGE FORM, QD
     Dates: start: 20171128
  43. SORBOLENE WITH 10% GLYCERINE [Concomitant]
     Dosage: UNK, BID
     Dates: start: 20171213
  44. CLOZARIL [Suspect]
     Active Substance: CLOZAPINE
     Indication: SCHIZOPHRENIA
     Dosage: UNK
     Route: 048
     Dates: start: 19920731
  45. CLOZARIL [Suspect]
     Active Substance: CLOZAPINE
     Dosage: 3 DOSAGE FORM, PM
     Route: 048
     Dates: start: 20171108
  46. LACTULOSE. [Concomitant]
     Active Substance: LACTULOSE
     Dosage: 20 MILLILITER, BID (TAKE WITH A LARGE GLASS OF WATER)
     Dates: start: 20171218
  47. MOLAXOLE [Concomitant]
     Active Substance: POLYETHYLENE GLYCOL 3350\POTASSIUM CHLORIDE\SODIUM BICARBONATE\SODIUM CHLORIDE
     Dosage: TWO SACHETS TWICE DAILY, DISSOLVE EACH SACHET IN 125ML OF WATER
     Dates: start: 20180120

REACTIONS (3)
  - Drug dose titration not performed [Unknown]
  - Aggression [Unknown]
  - Death [Fatal]

NARRATIVE: CASE EVENT DATE: 2018
